FAERS Safety Report 13192327 (Version 1)
Quarter: 2017Q1

REPORT INFORMATION
  Report Type: Spontaneous
  Country: IN (occurrence: IN)
  Receive Date: 20170207
  Receipt Date: 20170207
  Transmission Date: 20170428
  Serious: Yes (Other)
  Sender: FDA-Public Use
  Company Number: IN-CELGENEUS-IND-2017017729

PATIENT
  Sex: Male

DRUGS (3)
  1. REVLIMID [Suspect]
     Active Substance: LENALIDOMIDE
     Indication: LANGERHANS^ CELL HISTIOCYTOSIS
     Dosage: 1.875 MILLIGRAM
     Route: 048
  2. REVLIMID [Suspect]
     Active Substance: LENALIDOMIDE
     Indication: OFF LABEL USE
  3. DEXAMETHASONE. [Concomitant]
     Active Substance: DEXAMETHASONE
     Indication: LANGERHANS^ CELL HISTIOCYTOSIS
     Route: 048

REACTIONS (3)
  - Tuberculosis [Unknown]
  - Forearm fracture [Recovered/Resolved]
  - Fall [Recovered/Resolved]
